FAERS Safety Report 6431765-5 (Version None)
Quarter: 2009Q4

REPORT INFORMATION
  Report Type: 
  Country: None (occurrence: None)
  Receive Date: 20091104
  Receipt Date: 20091020
  Transmission Date: 20100525
  Serious: Yes (Death, Hospitalization)
  Sender: FDA-Public Use
  Company Number: 2008003300

PATIENT
  Age: 52 Year
  Sex: Male

DRUGS (16)
  1. ERLOTINIB HYDROCHLORIDE [Suspect]
     Indication: NEOPLASM
     Dosage: (150 MG, BID), ORAL
     Route: 048
     Dates: start: 20081020, end: 20081027
  2. PAZOPANIB [Suspect]
     Indication: NEOPLASM
     Dosage: (800 MG), ORAL
     Route: 048
     Dates: start: 20081020, end: 20081027
  3. PERCOCET [Concomitant]
  4. PHENERGAN WITH CODEINE (PHENERGAN WITH CODEINE) [Concomitant]
  5. IBUPROFEN [Concomitant]
  6. OXYCODONE HCL [Concomitant]
  7. MEGESTROL ACETATE [Concomitant]
  8. RABEPRAZOLE SODIUM [Concomitant]
  9. LEXAPRO [Concomitant]
  10. DOXYCYCLINE [Concomitant]
  11. AMOXICILLIN TRIHYDRATE [Concomitant]
  12. PROCHLORPERAZINE MALEATE [Concomitant]
  13. GRANISETRON HCL (GRANISETRON HYDROCHLORIDE) [Concomitant]
  14. SENNOSIDES [Concomitant]
  15. ONDANSETRON HYDROCHLORIDE [Concomitant]
  16. DOCUSATE (DOCUSATE) [Concomitant]

REACTIONS (14)
  - ACUTE RESPIRATORY DISTRESS SYNDROME [None]
  - ALANINE AMINOTRANSFERASE INCREASED [None]
  - ASPARTATE AMINOTRANSFERASE INCREASED [None]
  - BLOOD ALKALINE PHOSPHATASE INCREASED [None]
  - BLOOD BILIRUBIN INCREASED [None]
  - DIFFUSE ALVEOLAR DAMAGE [None]
  - GAMMA-GLUTAMYLTRANSFERASE INCREASED [None]
  - GENERAL PHYSICAL HEALTH DETERIORATION [None]
  - HEPATOTOXICITY [None]
  - HYPOXIA [None]
  - METASTASES TO HEART [None]
  - METASTASES TO KIDNEY [None]
  - METASTASES TO LIVER [None]
  - MULTI-ORGAN FAILURE [None]
